FAERS Safety Report 15368807 (Version 2)
Quarter: 2018Q3

REPORT INFORMATION
  Report Type: Report from Study
  Country: US (occurrence: US)
  Receive Date: 20180911
  Receipt Date: 20180919
  Transmission Date: 20181010
  Serious: Yes (Death, Life-Threatening, Other)
  Sender: FDA-Public Use
  Company Number: US-TEVA-2018-US-952620

PATIENT
  Age: 33 Year
  Sex: Male

DRUGS (1)
  1. VALPROIC ACID. [Suspect]
     Active Substance: VALPROIC ACID
     Route: 065

REACTIONS (10)
  - Ventricular arrhythmia [Unknown]
  - Respiratory depression [Unknown]
  - Bradycardia [Unknown]
  - Pneumonia aspiration [Unknown]
  - Acute respiratory distress syndrome [Unknown]
  - Coma [Unknown]
  - Acute lung injury [Unknown]
  - Toxicity to various agents [Fatal]
  - Hypotension [Unknown]
  - Depressed level of consciousness [Unknown]
